FAERS Safety Report 7136157-1 (Version None)
Quarter: 2010Q4

REPORT INFORMATION
  Report Type: 
  Country: None (occurrence: None)
  Receive Date: 20101206
  Receipt Date: 20101110
  Transmission Date: 20110411
  Serious: Yes (Death)
  Sender: FDA-Public Use
  Company Number: GB-AMGEN-GBRSP2010004613

PATIENT

DRUGS (9)
  1. ENBREL [Suspect]
     Indication: PSORIASIS
     Dosage: 50 MG, WEEKLY
     Route: 058
     Dates: start: 20050816, end: 20101002
  2. METHOTREXATE [Concomitant]
  3. ACETYL SALICYLIC ACID USP BAT [Concomitant]
  4. FOLIC ACID [Concomitant]
  5. GLICLAZIDE [Concomitant]
  6. METFORMIN [Concomitant]
  7. PERINDOPRIL [Concomitant]
  8. SIMVASTATIN [Concomitant]
  9. SYMBICORT [Concomitant]

REACTIONS (1)
  - CEREBRAL INFARCTION [None]
